FAERS Safety Report 6451632-0 (Version None)
Quarter: 2009Q4

REPORT INFORMATION
  Report Type: 
  Country: None (occurrence: None)
  Receive Date: 20091123
  Receipt Date: 20091118
  Transmission Date: 20100525
  Serious: Yes (Death, Hospitalization)
  Sender: FDA-Public Use
  Company Number: PHHY2009BR50736

PATIENT
  Age: 72 Year
  Sex: Female

DRUGS (3)
  1. EXELON [Suspect]
     Indication: DEMENTIA ALZHEIMER'S TYPE
     Dosage: 2 CAPSULES PER DAY
     Route: 048
  2. EVISTA [Concomitant]
     Indication: OSTEOPOROSIS
     Dosage: 2 TABLETS PER DAY
     Route: 048
     Dates: start: 20010101
  3. ZYPREXA [Concomitant]
     Indication: DEMENTIA ALZHEIMER'S TYPE
     Dosage: 2 TABLETS PER DAY
     Route: 048
     Dates: start: 20010101

REACTIONS (3)
  - INFECTION [None]
  - SWELLING [None]
  - URINARY TRACT INFECTION [None]
